FAERS Safety Report 13545427 (Version 3)
Quarter: 2017Q2

REPORT INFORMATION
  Report Type: Spontaneous
  Country: CA (occurrence: CA)
  Receive Date: 20170515
  Receipt Date: 20170626
  Transmission Date: 20170830
  Serious: Yes (Other)
  Sender: FDA-Public Use
  Company Number: CA-PFIZER INC-2017201206

PATIENT
  Age: 72 Year
  Sex: Male
  Weight: 86.17 kg

DRUGS (2)
  1. TOVIAZ [Suspect]
     Active Substance: FESOTERODINE FUMARATE
     Indication: HYPERTONIC BLADDER
     Dosage: 4 MG ONCE A DAY
     Route: 048
     Dates: start: 20160412, end: 201604
  2. TOVIAZ [Suspect]
     Active Substance: FESOTERODINE FUMARATE
     Dosage: 8 MG, 1X/DAY
     Route: 048
     Dates: start: 201604

REACTIONS (4)
  - Urinary tract obstruction [Recovered/Resolved]
  - Urine flow decreased [Recovered/Resolved]
  - Urinary hesitation [Recovered/Resolved]
  - Urinary retention [Recovered/Resolved]
